FAERS Safety Report 15697934 (Version 1)
Quarter: 2018Q4

REPORT INFORMATION
  Report Type: Spontaneous
  Country: US (occurrence: US)
  Receive Date: 20181126
  Receipt Date: 20181126
  Transmission Date: 20190205
  Serious: Yes (Hospitalization)
  Sender: FDA-Public Use
  Company Number: None

PATIENT
  Age: 56 Year
  Sex: Male
  Weight: 132.7 kg

DRUGS (2)
  1. LEUPROLIDE ACETATE. [Concomitant]
     Active Substance: LEUPROLIDE ACETATE
  2. CASODEX [Suspect]
     Active Substance: BICALUTAMIDE

REACTIONS (1)
  - Lymphocele [None]

NARRATIVE: CASE EVENT DATE: 20181025
